FAERS Safety Report 23374051 (Version 1)
Quarter: 2024Q1

REPORT INFORMATION
  Report Type: Spontaneous
  Country: ES (occurrence: ES)
  Receive Date: 20240105
  Receipt Date: 20240105
  Transmission Date: 20240410
  Serious: Yes (Life-Threatening, Other)
  Sender: FDA-Public Use
  Company Number: ES-PFIZER INC-202300299527

PATIENT
  Age: 34 Year
  Sex: Male

DRUGS (2)
  1. CYCLOPHOSPHAMIDE [Suspect]
     Active Substance: CYCLOPHOSPHAMIDE
     Indication: Desmoplastic small round cell tumour
     Dosage: 250 MG/M2, DAILY, DAYS 1-5, EVERY 3 WEEKS
     Route: 065
     Dates: start: 202103
  2. TOPOTECAN HYDROCHLORIDE [Suspect]
     Active Substance: TOPOTECAN HYDROCHLORIDE
     Indication: Desmoplastic small round cell tumour
     Dosage: 0.75 MG/M2, DAILY, DAYS 1-5, EVERY 3 WEEKS
     Route: 065
     Dates: start: 202103

REACTIONS (2)
  - Thrombocytopenia [Unknown]
  - Off label use [Unknown]
